FAERS Safety Report 8332830-8 (Version None)
Quarter: 2012Q2

REPORT INFORMATION
  Report Type: 
  Country: None (occurrence: None)
  Receive Date: 20120503
  Receipt Date: 20120425
  Transmission Date: 20120825
  Serious: Yes (Other)
  Sender: FDA-Public Use
  Company Number: US-BAYER-2011-036918

PATIENT
  Age: 34 Year
  Sex: Female

DRUGS (7)
  1. LO/OVRAL [Concomitant]
  2. VITAMIN D [Concomitant]
  3. YASMIN [Suspect]
  4. LISINOPRIL [Concomitant]
     Dosage: 10 MG, QD
     Route: 048
  5. HYDROMORPHONE HCL [Concomitant]
     Indication: PAIN
     Dosage: 2 MG, HS PRN
     Route: 048
  6. YAZ [Suspect]
  7. TRAMADOL HYDROCHLORIDE [Concomitant]
     Dosage: 500 MG, TID PRN
     Route: 048

REACTIONS (3)
  - INJURY [None]
  - PULMONARY EMBOLISM [None]
  - PAIN [None]
